FAERS Safety Report 8678102 (Version 27)
Quarter: 2016Q1

REPORT INFORMATION
  Report Type: Report from Study
  Country: CA (occurrence: CA)
  Receive Date: 20120723
  Receipt Date: 20160225
  Transmission Date: 20160526
  Serious: Yes (Hospitalization, Other)
  Sender: FDA-Public Use
  Company Number: CA-ASTRAZENECA-2012SE48671

PATIENT
  Age: 18567 Day
  Sex: Female
  Weight: 75.8 kg

DRUGS (106)
  1. SEROQUEL [Interacting]
     Active Substance: QUETIAPINE FUMARATE
     Indication: MENTAL DISORDER
     Route: 048
  2. EFFEXOR [Interacting]
     Active Substance: VENLAFAXINE HYDROCHLORIDE
     Indication: ANTIDEPRESSANT THERAPY
     Route: 048
  3. EFFEXOR [Interacting]
     Active Substance: VENLAFAXINE HYDROCHLORIDE
     Indication: ANTIDEPRESSANT THERAPY
     Route: 048
  4. CYCLOBENZAPRINE [Concomitant]
     Active Substance: CYCLOBENZAPRINE
  5. DEPO-MEDROL [Concomitant]
     Active Substance: METHYLPREDNISOLONE ACETATE
     Route: 014
  6. BOTOX [Concomitant]
     Active Substance: ONABOTULINUMTOXINA
     Dosage: EVERY THREE MONTHS
     Route: 030
  7. IMOVANE [Concomitant]
     Active Substance: ZOPICLONE
  8. OXYNEO [Concomitant]
     Active Substance: OXYCODONE
  9. APO-CYCLOBENZAPRINE [Concomitant]
     Active Substance: CYCLOBENZAPRINE
     Dosage: 10 MG TWICE DAILY AS NEEDED
  10. SPIRONOLACTONE. [Concomitant]
     Active Substance: SPIRONOLACTONE
  11. MAGNESIUM [Concomitant]
     Active Substance: MAGNESIUM
     Route: 048
  12. SULFAMETHOXAZOLE/TRIMETHOPRIN [Concomitant]
     Indication: PNEUMONIA
     Dosage: 400/80 MG BID
  13. FUROSEMIDE. [Concomitant]
     Active Substance: FUROSEMIDE
     Dosage: 40 MG QAM
  14. CAPRELSA [Interacting]
     Active Substance: VANDETANIB
     Indication: MEDULLARY THYROID CANCER
     Route: 048
     Dates: end: 20150212
  15. CAPRELSA [Interacting]
     Active Substance: VANDETANIB
     Indication: MEDULLARY THYROID CANCER
     Route: 048
     Dates: start: 20150226
  16. NAROPIN [Suspect]
     Active Substance: ROPIVACAINE HYDROCHLORIDE
     Route: 051
  17. AMITRIPTYLINE HCL [Concomitant]
     Active Substance: AMITRIPTYLINE
  18. OXYNEO [Concomitant]
     Active Substance: OXYCODONE
     Dates: start: 20121130
  19. ATENOLOL. [Concomitant]
     Active Substance: ATENOLOL
     Dates: end: 20121102
  20. APO-FUROSEMIDE [Concomitant]
     Active Substance: FUROSEMIDE
  21. VENTOLIN [Concomitant]
     Active Substance: ALBUTEROL SULFATE
     Dosage: 100 MCG DAILY AS NEEDED
     Dates: end: 20121102
  22. BENADRYL [Concomitant]
     Active Substance: DIPHENHYDRAMINE HYDROCHLORIDE
  23. ROBAXACET [Concomitant]
     Active Substance: ACETAMINOPHEN\METHOCARBAMOL
  24. LYRICA [Concomitant]
     Active Substance: PREGABALIN
     Route: 048
  25. TYLENOL WITH CODEINE [Concomitant]
     Active Substance: ACETAMINOPHEN\CODEINE PHOSPHATE
  26. MAGNESIUM [Concomitant]
     Active Substance: MAGNESIUM
     Route: 048
  27. LAMISIL [Concomitant]
     Active Substance: TERBINAFINE HYDROCHLORIDE
  28. ADVAIR HFA [Concomitant]
     Active Substance: FLUTICASONE PROPIONATE\SALMETEROL XINAFOATE
  29. CAPRELSA [Interacting]
     Active Substance: VANDETANIB
     Indication: MEDULLARY THYROID CANCER
     Route: 048
     Dates: start: 201210
  30. SYMBICORT [Suspect]
     Active Substance: BUDESONIDE\FORMOTEROL FUMARATE DIHYDRATE
     Dosage: 200 MCG 2 PUFFS, BID
     Route: 055
  31. TRAZODONE [Concomitant]
     Active Substance: TRAZODONE HYDROCHLORIDE
     Route: 048
  32. PROCHLORPERAZINE. [Concomitant]
     Active Substance: PROCHLORPERAZINE
     Indication: DIARRHOEA
     Dosage: 10 MG 3 TIMES PER DAY AS NEEDED
  33. TYLENOL WITH CODEINE [Concomitant]
     Active Substance: ACETAMINOPHEN\CODEINE PHOSPHATE
  34. TYLENOL WITH CODEINE [Concomitant]
     Active Substance: ACETAMINOPHEN\CODEINE PHOSPHATE
  35. ROBAXACET [Concomitant]
     Active Substance: ACETAMINOPHEN\METHOCARBAMOL
  36. PANTOPRAZOLE [Concomitant]
     Active Substance: PANTOPRAZOLE SODIUM
  37. POTASSIUM [Concomitant]
     Active Substance: POTASSIUM
     Route: 048
  38. VITAMIN D3 [Concomitant]
     Active Substance: CHOLECALCIFEROL
     Route: 048
  39. CALCIUM [Concomitant]
     Active Substance: CALCIUM
     Route: 048
  40. OXYCODONE [Concomitant]
     Active Substance: OXYCODONE
  41. CAPRELSA [Interacting]
     Active Substance: VANDETANIB
     Indication: MEDULLARY THYROID CANCER
     Route: 048
     Dates: end: 20130328
  42. CAPRELSA [Interacting]
     Active Substance: VANDETANIB
     Indication: MEDULLARY THYROID CANCER
     Route: 048
     Dates: start: 20120618, end: 20150812
  43. CAPRELSA [Interacting]
     Active Substance: VANDETANIB
     Indication: MEDULLARY THYROID CANCER
     Route: 048
     Dates: start: 20150820
  44. SEROQUEL [Interacting]
     Active Substance: QUETIAPINE FUMARATE
     Indication: MENTAL DISORDER
     Route: 048
  45. DEPO-MEDROL [Concomitant]
     Active Substance: METHYLPREDNISOLONE ACETATE
  46. RATIO-TRYPTOPHAN [Concomitant]
  47. IMOVANE [Concomitant]
     Active Substance: ZOPICLONE
  48. ELAVIL [Concomitant]
     Active Substance: AMITRIPTYLINE HYDROCHLORIDE
  49. ALLEGRA [Concomitant]
     Active Substance: FEXOFENADINE HYDROCHLORIDE
     Dosage: PRN
  50. ACETAMINOPHEN + CODEINE [Concomitant]
  51. PROCHLORPERAZINE MALEATE. [Concomitant]
     Active Substance: PROCHLORPERAZINE MALEATE
     Dosage: 5 MG TID PRN
     Route: 048
  52. CAPRELSA [Interacting]
     Active Substance: VANDETANIB
     Indication: MEDULLARY THYROID CANCER
     Route: 048
     Dates: start: 20120618, end: 20120703
  53. CAPRELSA [Interacting]
     Active Substance: VANDETANIB
     Indication: MEDULLARY THYROID CANCER
     Route: 048
     Dates: start: 20120618, end: 20121109
  54. CAPRELSA [Interacting]
     Active Substance: VANDETANIB
     Indication: MEDULLARY THYROID CANCER
     Route: 048
     Dates: start: 20121123, end: 20130219
  55. CAPRELSA [Interacting]
     Active Substance: VANDETANIB
     Indication: MEDULLARY THYROID CANCER
     Route: 048
     Dates: start: 20120918
  56. EFFEXOR [Interacting]
     Active Substance: VENLAFAXINE HYDROCHLORIDE
     Indication: ANTIDEPRESSANT THERAPY
     Route: 048
  57. IMOVANE [Concomitant]
     Active Substance: ZOPICLONE
  58. IMOVANE [Concomitant]
     Active Substance: ZOPICLONE
  59. PROCHLORPERAZINE. [Concomitant]
     Active Substance: PROCHLORPERAZINE
     Indication: NAUSEA
     Dosage: 5 MG 3 TIMES PER DAY AS NEEDED
  60. PROCHLORPERAZINE. [Concomitant]
     Active Substance: PROCHLORPERAZINE
     Indication: DIARRHOEA
     Dosage: 5 PM, AS REQUIRED
     Route: 048
  61. APO-FUROSEMIDE [Concomitant]
     Active Substance: FUROSEMIDE
  62. ELTROXIN [Concomitant]
     Active Substance: LEVOTHYROXINE
  63. FUSIDIC ACID [Concomitant]
     Active Substance: FUSIDIC ACID
  64. STEMETIL [Concomitant]
     Active Substance: PROCHLORPERAZINE MALEATE
     Dosage: PRN
  65. PRISTIQ EXTENDED RELEASE [Concomitant]
     Active Substance: DESVENLAFAXINE SUCCINATE
     Dosage: 100 MG AC
     Route: 048
  66. PSEUDOEPHEDRINE [Concomitant]
     Active Substance: PSEUDOEPHEDRINE
  67. FUCIDIN [Concomitant]
     Active Substance: FUSIDIC ACID
     Route: 061
  68. LOPERAMIDE [Concomitant]
     Active Substance: LOPERAMIDE
     Indication: DIARRHOEA
     Dosage: AS REQUIRED
  69. ATORVASTATIN [Concomitant]
     Active Substance: ATORVASTATIN
  70. CAPRELSA [Interacting]
     Active Substance: VANDETANIB
     Indication: MEDULLARY THYROID CANCER
     Route: 048
     Dates: start: 20120727, end: 20120823
  71. CAPRELSA [Interacting]
     Active Substance: VANDETANIB
     Indication: MEDULLARY THYROID CANCER
     Route: 048
     Dates: start: 20120618, end: 20140328
  72. NAROPIN [Suspect]
     Active Substance: ROPIVACAINE HYDROCHLORIDE
     Route: 065
  73. PROCHLORPERAZINE. [Concomitant]
     Active Substance: PROCHLORPERAZINE
     Indication: NAUSEA
     Dosage: 10 MG 3 TIMES PER DAY AS NEEDED
  74. OXYNEO [Concomitant]
     Active Substance: OXYCODONE
  75. FOLIC ACID. [Concomitant]
     Active Substance: FOLIC ACID
  76. DULCOLAX NOS [Concomitant]
     Active Substance: BISACODYL OR DOCUSATE SODIUM
     Dosage: PRN
  77. STEMETIL [Concomitant]
     Active Substance: PROCHLORPERAZINE MALEATE
     Dates: start: 20121102
  78. SPIRIVA [Concomitant]
     Active Substance: TIOTROPIUM BROMIDE MONOHYDRATE
  79. SYNTHROID [Concomitant]
     Active Substance: LEVOTHYROXINE SODIUM
  80. L-TRYPTOPHAN [Concomitant]
     Active Substance: TRYPTOPHAN
  81. CAPRELSA [Interacting]
     Active Substance: VANDETANIB
     Indication: MEDULLARY THYROID CANCER
     Route: 048
     Dates: start: 20120618, end: 20130906
  82. CAPRELSA [Interacting]
     Active Substance: VANDETANIB
     Indication: MEDULLARY THYROID CANCER
     Route: 048
     Dates: start: 20140106
  83. CAPRELSA [Interacting]
     Active Substance: VANDETANIB
     Indication: MEDULLARY THYROID CANCER
     Route: 048
     Dates: start: 20120618
  84. CAPRELSA [Interacting]
     Active Substance: VANDETANIB
     Indication: MEDULLARY THYROID CANCER
     Route: 048
     Dates: start: 20141102
  85. CAPRELSA [Interacting]
     Active Substance: VANDETANIB
     Indication: MEDULLARY THYROID CANCER
     Route: 048
     Dates: start: 20120618
  86. TUDORZA GENUAIR [Suspect]
     Active Substance: ACLIDINIUM BROMIDE
     Route: 055
  87. PROCHLORPERAZINE. [Concomitant]
     Active Substance: PROCHLORPERAZINE
     Indication: DIARRHOEA
     Dosage: 5 MG 3 TIMES PER DAY AS NEEDED
  88. TYLENOL WITH CODEINE [Concomitant]
     Active Substance: ACETAMINOPHEN\CODEINE PHOSPHATE
  89. APO-FUROSEMIDE [Concomitant]
     Active Substance: FUROSEMIDE
  90. APO-FUROSEMIDE [Concomitant]
     Active Substance: FUROSEMIDE
  91. BENADRYL [Concomitant]
     Active Substance: DIPHENHYDRAMINE HYDROCHLORIDE
  92. CLINDAMYCIN [Concomitant]
     Active Substance: CLINDAMYCIN\CLINDAMYCIN PHOSPHATE
  93. TRIPROLIDINE, PSEUDOEPHEDRINE [Concomitant]
  94. CALCIUM CARBONATE. [Concomitant]
     Active Substance: CALCIUM CARBONATE
  95. AVELOX [Concomitant]
     Active Substance: MOXIFLOXACIN HYDROCHLORIDE
     Indication: PNEUMONIA
     Route: 048
  96. RIZATRIPTAN BENZOATE. [Concomitant]
     Active Substance: RIZATRIPTAN BENZOATE
  97. LOPERAMIDE [Concomitant]
     Active Substance: LOPERAMIDE
     Indication: NAUSEA
     Dosage: AS REQUIRED
  98. CAPRELSA [Interacting]
     Active Substance: VANDETANIB
     Indication: MEDULLARY THYROID CANCER
     Route: 048
     Dates: start: 20120618, end: 20130712
  99. CAPRELSA [Interacting]
     Active Substance: VANDETANIB
     Indication: MEDULLARY THYROID CANCER
     Route: 048
     Dates: start: 20120618, end: 20130920
  100. MAXALT [Concomitant]
     Active Substance: RIZATRIPTAN BENZOATE
  101. PROCHLORPERAZINE. [Concomitant]
     Active Substance: PROCHLORPERAZINE
     Indication: NAUSEA
     Dosage: 5 PM, AS REQUIRED
     Route: 048
  102. VITAMIN B12 [Concomitant]
     Active Substance: CYANOCOBALAMIN
  103. CODEINE [Concomitant]
     Active Substance: CODEINE
  104. ALLEGRA [Concomitant]
     Active Substance: FEXOFENADINE HYDROCHLORIDE
  105. PREGABALIN. [Concomitant]
     Active Substance: PREGABALIN
     Route: 048
  106. ATROVENT [Concomitant]
     Active Substance: IPRATROPIUM BROMIDE

REACTIONS (29)
  - Drug interaction [Recovered/Resolved]
  - Pneumonia [Not Recovered/Not Resolved]
  - Loss of consciousness [Unknown]
  - Electrocardiogram QT prolonged [Not Recovered/Not Resolved]
  - Electrocardiogram abnormal [Recovered/Resolved]
  - Lower respiratory tract infection [Not Recovered/Not Resolved]
  - Back pain [Not Recovered/Not Resolved]
  - Gastroenteritis viral [Unknown]
  - Cough [Not Recovered/Not Resolved]
  - Cerebrovascular accident [Unknown]
  - Nausea [Recovered/Resolved]
  - Pain [Unknown]
  - Fall [Not Recovered/Not Resolved]
  - Wound infection [Not Recovered/Not Resolved]
  - Eye infection [Not Recovered/Not Resolved]
  - Nasopharyngitis [Not Recovered/Not Resolved]
  - Abdominal pain upper [Not Recovered/Not Resolved]
  - Rash [Recovering/Resolving]
  - Urinary incontinence [Unknown]
  - Diarrhoea [Recovered/Resolved]
  - Sinusitis [Recovered/Resolved]
  - Fatigue [Not Recovered/Not Resolved]
  - Breast abscess [Recovering/Resolving]
  - Impaired healing [Not Recovered/Not Resolved]
  - Cystitis [Unknown]
  - Oropharyngeal pain [Not Recovered/Not Resolved]
  - Neck pain [Not Recovered/Not Resolved]
  - Musculoskeletal pain [Not Recovered/Not Resolved]
  - Pyrexia [Unknown]

NARRATIVE: CASE EVENT DATE: 20120703
